FAERS Safety Report 5328534-6 (Version None)
Quarter: 2007Q2

REPORT INFORMATION
  Report Type: 
  Country: None (occurrence: None)
  Receive Date: 20070518
  Receipt Date: 20070323
  Transmission Date: 20071010
  Serious: No
  Sender: FDA-Public Use
  Company Number: US-JNJFOC-20070204420

PATIENT
  Sex: Female

DRUGS (3)
  1. INVEGA [Suspect]
     Route: 048
  2. INVEGA [Suspect]
     Indication: SCHIZOPHRENIA
     Route: 048
  3. BENADRYL [Concomitant]

REACTIONS (4)
  - DYSKINESIA [None]
  - EXTRAPYRAMIDAL DISORDER [None]
  - SWOLLEN TONGUE [None]
  - TREMOR [None]
